FAERS Safety Report 6120979-X (Version None)
Quarter: 2009Q1

REPORT INFORMATION
  Report Type: 
  Country: None (occurrence: None)
  Receive Date: 20090313
  Receipt Date: 20090203
  Transmission Date: 20090719
  Serious: Yes (Other)
  Sender: FDA-Public Use
  Company Number: CERZ-1000393

PATIENT
  Age: 30 Year
  Sex: Female

DRUGS (1)
  1. CEREZYME [Suspect]
     Indication: GAUCHER'S DISEASE
     Dosage: 30 U/KG, Q2W, INTRAVENOUS
     Route: 042
     Dates: start: 20080101

REACTIONS (4)
  - ABDOMINAL PAIN [None]
  - CONVULSION [None]
  - RASH [None]
  - TACHYCARDIA [None]
